FAERS Safety Report 4876577-9 (Version None)
Quarter: 2005Q4

REPORT INFORMATION
  Report Type: 
  Country: None (occurrence: None)
  Receive Date: 20051206
  Receipt Date: 20050818
  Transmission Date: 20060501
  Serious: No
  Sender: FDA-Public Use
  Company Number: USA050699826

PATIENT
  Age: 74 Year
  Sex: Female
  Weight: 50 kg

DRUGS (4)
  1. CYMBALTA [Suspect]
     Indication: DIABETIC NEUROPATHY
     Dosage: 30 MG IN THE MORNING
     Dates: start: 20050531, end: 20050602
  2. EVISTA [Suspect]
  3. DIABETEC MEDS [Concomitant]
  4. NEURONTIN [Concomitant]

REACTIONS (7)
  - ABDOMINAL PAIN [None]
  - ABNORMAL SLEEP-RELATED EVENT [None]
  - DYSPEPSIA [None]
  - FAECES DISCOLOURED [None]
  - GASTRIC ULCER HAEMORRHAGE [None]
  - MALAISE [None]
  - NAUSEA [None]
